FAERS Safety Report 17424297 (Version 1)
Quarter: 2020Q1

REPORT INFORMATION
  Report Type: Spontaneous
  Country: US (occurrence: US)
  Receive Date: 20200217
  Receipt Date: 20200217
  Transmission Date: 20200409
  Serious: Yes (Death, Hospitalization, Other)
  Sender: FDA-Public Use
  Company Number: US-AMGEN-USASP2020024542

PATIENT

DRUGS (4)
  1. IFOSFAMIDE. [Suspect]
     Active Substance: IFOSFAMIDE
     Indication: REFRACTORY CANCER
     Dosage: UNK UNK, QD (2-3G/M2)
     Route: 040
  2. FILGRASTIM [Suspect]
     Active Substance: FILGRASTIM
     Indication: PROPHYLAXIS
     Dosage: 5 MICROGRAM/KILOGRAM, QD
     Route: 058
  3. MESNA. [Concomitant]
     Active Substance: MESNA
     Indication: PROPHYLAXIS
     Dosage: UNK (400-600 MG/M3)
     Route: 042
  4. PACLITAXEL. [Suspect]
     Active Substance: PACLITAXEL
     Indication: REFRACTORY CANCER
     Dosage: UNK (135-190 G/M2) OVER 24 HOURS
     Route: 042

REACTIONS (22)
  - Atrial fibrillation [Recovered/Resolved]
  - Neuropathy peripheral [Recovered/Resolved]
  - Cytomegalovirus test positive [Unknown]
  - Bone marrow failure [Unknown]
  - Granulocytopenia [Unknown]
  - Diarrhoea [Unknown]
  - Thrombocytopenia [Unknown]
  - Pyrexia [Unknown]
  - Pleural effusion [Unknown]
  - Therapeutic product effect incomplete [Unknown]
  - Haemorrhage intracranial [Fatal]
  - Transaminases increased [Unknown]
  - Pericardial effusion [Recovered/Resolved]
  - Breast cancer [Unknown]
  - Herpes zoster disseminated [Unknown]
  - Myalgia [Recovered/Resolved]
  - Febrile neutropenia [Unknown]
  - Varicella zoster virus infection [Unknown]
  - Metastases to central nervous system [Unknown]
  - Haematotoxicity [Unknown]
  - Colon cancer [Unknown]
  - Lung infiltration [Unknown]
